FAERS Safety Report 21180444 (Version 2)
Quarter: 2025Q1

REPORT INFORMATION
  Report Type: Spontaneous
  Country: SE (occurrence: SE)
  Receive Date: 20220806
  Receipt Date: 20250101
  Transmission Date: 20250409
  Serious: Yes (Hospitalization, Disabling)
  Sender: ACCORD
  Company Number: None

PATIENT
  Age: 38 Year
  Sex: Male
  Weight: 120 kg

DRUGS (5)
  1. SERTRALINE [Suspect]
     Active Substance: SERTRALINE HYDROCHLORIDE
     Indication: Depression
     Dates: start: 20200130, end: 2022
  2. ACETAMINOPHEN [Concomitant]
     Active Substance: ACETAMINOPHEN
     Dosage: STRENGTH:  1 G, 1000MGX4
     Dates: start: 20200102
  3. PARAFLEX [Concomitant]
     Active Substance: CHLORZOXAZONE
     Dates: start: 20200102, end: 202212
  4. IBUPROFEN [Concomitant]
     Active Substance: IBUPROFEN
     Dosage: STRENGTH: 400 MG, 400X3
     Dates: start: 20230101
  5. SERTRALINE [Suspect]
     Active Substance: SERTRALINE HYDROCHLORIDE
     Indication: Depression
     Dosage: 4X25MG X1
     Dates: start: 20200130, end: 2022

REACTIONS (7)
  - Galactorrhoea [Not Recovered/Not Resolved]
  - Musculoskeletal stiffness [Not Recovered/Not Resolved]
  - Blood prolactin increased [Not Recovered/Not Resolved]
  - Gynaecomastia [Not Recovered/Not Resolved]
  - Blood testosterone decreased [Not Recovered/Not Resolved]
  - Blood thyroid stimulating hormone increased [Not Recovered/Not Resolved]
  - Glucocorticoid deficiency [Recovered/Resolved with Sequelae]

NARRATIVE: CASE EVENT DATE: 20210302
